FAERS Safety Report 6619314-X (Version None)
Quarter: 2010Q1

REPORT INFORMATION
  Report Type: 
  Country: None (occurrence: None)
  Receive Date: 20100303
  Receipt Date: 20100216
  Transmission Date: 20100710
  Serious: Yes (Hospitalization, Other)
  Sender: FDA-Public Use
  Company Number: MIV-00038

PATIENT
  Age: 22 Year
  Sex: Male

DRUGS (6)
  1. MINOCYCLINE HYDROCHLORIDE [Suspect]
     Indication: ENDOCARDITIS
     Dosage: 200 INTRAVENOUS (FIRST TREATMENT PERIOD)
     Route: 042
  2. MINOCYCLINE HYDROCHLORIDE [Suspect]
     Indication: ENDOCARDITIS
     Dosage: 200 MG/DAY,  INTRAVENOUS, (SECOND TREATMENT PERIOD)
     Route: 042
  3. PIPERACILLIN SODIUM [Suspect]
     Indication: ENDOCARDITIS
     Dosage: 8 G/DAY, INTRAVENOUS
     Route: 042
  4. IMIPENEM AND CILASTATIN SODIUM [Suspect]
     Indication: ENDOCARDITIS
     Dosage: 2 G/DAY, INTRAVENOUS
     Route: 042
  5. AMPICILLIN [Suspect]
     Indication: ENDOCARDITIS
     Dosage: 12 G/DAY, INTRAVENOUS
     Route: 042
  6. TEICOPLANIN [Suspect]
     Indication: ENDOCARDITIS
     Dosage: BLOOD TROUGH 10-20 UG/ML

REACTIONS (5)
  - CONDITION AGGRAVATED [None]
  - DRUG INEFFECTIVE FOR UNAPPROVED INDICATION [None]
  - ENDOCARDITIS STAPHYLOCOCCAL [None]
  - MITRAL VALVE INCOMPETENCE [None]
  - RENAL INFARCT [None]
